FAERS Safety Report 8460646-0 (Version None)
Quarter: 2012Q2

REPORT INFORMATION
  Report Type: 
  Country: None (occurrence: None)
  Receive Date: 20120622
  Receipt Date: 20120618
  Transmission Date: 20120825
  Serious: Yes (Other)
  Sender: FDA-Public Use
  Company Number: US-AMGEN-USASP2012038377

PATIENT
  Age: 68 Year
  Sex: Female
  Weight: 72.3 kg

DRUGS (1)
  1. XGEVA [Suspect]
     Indication: METASTASES TO BONE
     Dosage: 120 MG, Q4WK
     Route: 058
     Dates: start: 20110510, end: 20120306

REACTIONS (2)
  - OSTEONECROSIS OF JAW [None]
  - CENTRAL NERVOUS SYSTEM LESION [None]
